FAERS Safety Report 4530152-4 (Version None)
Quarter: 2004Q4

REPORT INFORMATION
  Report Type: 
  Country: None (occurrence: None)
  Receive Date: 20041215
  Receipt Date: 20040927
  Transmission Date: 20050328
  Serious: Yes (Hospitalization)
  Sender: FDA-Public Use
  Company Number: 2004IM000875

PATIENT
  Age: 18 Year
  Sex: Male

DRUGS (1)
  1. ACTIMMUNE [Suspect]
     Indication: NEUTROPHIL FUNCTION DISORDER
     Dosage: 70 UG; TIW; SUBCUTANEOUS
     Route: 058
     Dates: start: 20021002

REACTIONS (2)
  - PNEUMONIA [None]
  - UNEVALUABLE EVENT [None]
